FAERS Safety Report 14125056 (Version 1)
Quarter: 2017Q4

REPORT INFORMATION
  Report Type: Report from Study
  Country: BR (occurrence: BR)
  Receive Date: 20171025
  Receipt Date: 20171025
  Transmission Date: 20180321
  Serious: Yes (Hospitalization)
  Sender: FDA-Public Use
  Company Number: PHHY2017BR153229

PATIENT
  Sex: Male
  Weight: 45 kg

DRUGS (1)
  1. EXJADE [Suspect]
     Active Substance: DEFERASIROX
     Indication: IRON OVERLOAD
     Dosage: 3 DF, QD (750 MG)
     Route: 048

REACTIONS (11)
  - Pain in extremity [Unknown]
  - Influenza [Unknown]
  - Pyrexia [Unknown]
  - Blood disorder [Unknown]
  - Toothache [Unknown]
  - Headache [Unknown]
  - Back pain [Unknown]
  - Infection [Unknown]
  - Myalgia [Unknown]
  - Crying [Unknown]
  - Hypersomnia [Unknown]
